FAERS Safety Report 20809326 (Version 1)
Quarter: 2022Q2

REPORT INFORMATION
  Report Type: Spontaneous
  Country: US (occurrence: US)
  Receive Date: 20220510
  Receipt Date: 20220510
  Transmission Date: 20220720
  Serious: Yes (Other)
  Sender: FDA-Public Use
  Company Number: US-GLAXOSMITHKLINE-US2022073037

PATIENT
  Sex: Female

DRUGS (2)
  1. ADVAIR DISKUS [Suspect]
     Active Substance: FLUTICASONE PROPIONATE\SALMETEROL XINAFOATE
     Indication: Asthma
     Dosage: UNK
  2. ALBUTEROL SULFATE [Suspect]
     Active Substance: ALBUTEROL SULFATE
     Indication: Asthma
     Dosage: UNK

REACTIONS (10)
  - Pneumonia [Unknown]
  - Illness [Not Recovered/Not Resolved]
  - COVID-19 [Unknown]
  - Migraine [Recovering/Resolving]
  - Respiratory tract congestion [Recovering/Resolving]
  - Wheezing [Recovering/Resolving]
  - Dyspnoea [Unknown]
  - Coronavirus infection [Unknown]
  - Product use in unapproved indication [Unknown]
  - Inability to afford medication [Unknown]
